FAERS Safety Report 10162871 (Version 1)
Quarter: 2014Q2

REPORT INFORMATION
  Report Type: Spontaneous
  Country: FR (occurrence: FR)
  Receive Date: 20140509
  Receipt Date: 20140509
  Transmission Date: 20141212
  Serious: Yes (Hospitalization)
  Sender: FDA-Public Use
  Company Number: FR-SA-2014SA056001

PATIENT
  Age: 76 Year
  Sex: Male

DRUGS (4)
  1. PLAVIX [Suspect]
     Indication: PRODUCT USED FOR UNKNOWN INDICATION
     Route: 048
     Dates: start: 20140413, end: 20140413
  2. TENORMINE [Suspect]
     Indication: PRODUCT USED FOR UNKNOWN INDICATION
     Route: 048
     Dates: start: 20140413, end: 20140413
  3. COVERSYL [Concomitant]
  4. LEXOMIL [Concomitant]

REACTIONS (3)
  - Somnolence [Recovered/Resolved]
  - Intentional overdose [Unknown]
  - Bradycardia [Recovered/Resolved]
